FAERS Safety Report 8423921 (Version 3)
Quarter: 2013Q1

REPORT INFORMATION
  Report Type: Spontaneous
  Country: US (occurrence: TR)
  Receive Date: 20120224
  Receipt Date: 20130219
  Transmission Date: 20140127
  Serious: Yes (Death, Hospitalization, Other)
  Sender: FDA-Public Use
  Company Number: US-PFIZER INC-2012047840

PATIENT
  Age: 71 Year
  Sex: Male

DRUGS (1)
  1. LYRICA [Suspect]
     Indication: POST HERPETIC NEURALGIA
     Dosage: 75 MG, 2X/DAY (BID)
     Route: 048

REACTIONS (5)
  - Cardiac failure congestive [Fatal]
  - Cerebral infarction [Fatal]
  - Respiratory acidosis [Fatal]
  - Cardiac arrest [Fatal]
  - Hypertension [Fatal]
